FAERS Safety Report 6607139-0 (Version None)
Quarter: 2010Q1

REPORT INFORMATION
  Report Type: 
  Country: None (occurrence: None)
  Receive Date: 20100212
  Receipt Date: 20091207
  Transmission Date: 20100710
  Serious: Yes (Hospitalization)
  Sender: FDA-Public Use
  Company Number: 1000010601

PATIENT
  Age: 47 Year
  Sex: Female
  Weight: 163.2949 kg

DRUGS (10)
  1. SAVELLA [Suspect]
     Indication: FIBROMYALGIA
     Dosage: 6.25 MG (6.25 MG, 1 IN 1 D), ORAL;12.5 MG (6.25 MG, 2 IN 1 D), ORAL;25 MG (12.5 MG, 2 IN 1 D), ORAL
     Route: 048
     Dates: start: 20091029, end: 20091030
  2. SAVELLA [Suspect]
     Indication: FIBROMYALGIA
     Dosage: 6.25 MG (6.25 MG, 1 IN 1 D), ORAL;12.5 MG (6.25 MG, 2 IN 1 D), ORAL;25 MG (12.5 MG, 2 IN 1 D), ORAL
     Route: 048
     Dates: start: 20091031, end: 20091103
  3. SAVELLA [Suspect]
     Indication: FIBROMYALGIA
     Dosage: 6.25 MG (6.25 MG, 1 IN 1 D), ORAL;12.5 MG (6.25 MG, 2 IN 1 D), ORAL;25 MG (12.5 MG, 2 IN 1 D), ORAL
     Route: 048
     Dates: start: 20091104, end: 20091111
  4. SAVELLA [Suspect]
     Indication: FIBROMYALGIA
     Dosage: 50 MG (25 MG, 2 IN 1 D), ORAL
     Route: 048
     Dates: start: 20091112, end: 20091123
  5. METFORMIN HCL [Concomitant]
  6. MICARDIS [Concomitant]
  7. AMBIEN [Concomitant]
  8. PERCOCET [Concomitant]
  9. FLEXERIL [Concomitant]
  10. ATIVAN [Concomitant]

REACTIONS (3)
  - ADVERSE DRUG REACTION [None]
  - HYPOAESTHESIA [None]
  - PERONEAL NERVE PALSY [None]
